FAERS Safety Report 10159705 (Version 1)
Quarter: 2014Q2

REPORT INFORMATION
  Report Type: Spontaneous
  Country: US (occurrence: US)
  Receive Date: 20140508
  Receipt Date: 20140508
  Transmission Date: 20141212
  Serious: No
  Sender: FDA-Public Use
  Company Number: US-GLAXOSMITHKLINE-A1022571A

PATIENT
  Sex: Female

DRUGS (7)
  1. TYKERB [Suspect]
     Indication: BREAST CANCER
     Dosage: 250MG UNKNOWN
     Route: 065
     Dates: start: 20130423
  2. XELODA [Suspect]
     Indication: BREAST CANCER
     Dosage: 500MG CYCLIC
     Route: 048
     Dates: start: 20130423
  3. ZOLADEX [Concomitant]
  4. BABY ASPIRIN [Concomitant]
  5. CALCIUM + VITAMIN D [Concomitant]
  6. MULTIVITAMIN [Concomitant]
  7. HERCEPTIN [Concomitant]

REACTIONS (2)
  - Diarrhoea [Unknown]
  - Pain in extremity [Unknown]
